FAERS Safety Report 5572229-0 (Version None)
Quarter: 2007Q4

REPORT INFORMATION
  Report Type: 
  Country: None (occurrence: None)
  Receive Date: 20071221
  Receipt Date: 20071214
  Transmission Date: 20080405
  Serious: Yes (Other)
  Sender: FDA-Public Use
  Company Number: US-PFIZER INC-2007105443

PATIENT
  Sex: Female

DRUGS (2)
  1. ZITHROMAX [Suspect]
     Indication: UPPER RESPIRATORY TRACT INFECTION
     Dates: start: 20071203, end: 20071205
  2. VITAMIN CAP [Concomitant]

REACTIONS (4)
  - ANXIETY [None]
  - HALLUCINATION, AUDITORY [None]
  - HALLUCINATION, VISUAL [None]
  - INSOMNIA [None]
